FAERS Safety Report 5103444-8 (Version None)
Quarter: 2006Q3

REPORT INFORMATION
  Report Type: 
  Country: None (occurrence: None)
  Receive Date: 20060913
  Receipt Date: 20060908
  Transmission Date: 20061208
  Serious: Yes (Hospitalization)
  Sender: FDA-Public Use
  Company Number: 2006UW17646

PATIENT
  Age: 70 Year
  Sex: Female

DRUGS (5)
  1. ZOMIG [Suspect]
     Indication: MIGRAINE
     Route: 048
     Dates: start: 20000101
  2. FIORINAL [Concomitant]
     Indication: MIGRAINE
  3. SYNTHROID [Concomitant]
  4. TAMOXIFEN CITRATE [Concomitant]
     Indication: BREAST CANCER
  5. FEMARA [Concomitant]
     Indication: BREAST CANCER
     Dates: start: 20050701

REACTIONS (2)
  - HEPATIC ENZYME INCREASED [None]
  - POSTOPERATIVE INFECTION [None]
